FAERS Safety Report 10079342 (Version 1)
Quarter: 2014Q2

REPORT INFORMATION
  Report Type: Spontaneous
  Country: FR (occurrence: FR)
  Receive Date: 20140415
  Receipt Date: 20140415
  Transmission Date: 20141212
  Serious: Yes (Other)
  Sender: FDA-Public Use
  Company Number: FR-WATSON-2014-07284

PATIENT
  Age: 68 Year
  Sex: Male

DRUGS (3)
  1. TRELSTAR UNKNOWN STRENGTH (WATSON LABORATORIES) [Suspect]
     Indication: PROSTATE CANCER
     Dosage: UNK, UNKNOWN
     Route: 030
     Dates: start: 201302, end: 201310
  2. ANDROCURE [Suspect]
     Indication: PROSTATE CANCER
     Dosage: UNK, UNKNOWN
     Route: 048
     Dates: start: 201302, end: 201310
  3. MONOCLONAL ANTIBODIES [Suspect]
     Indication: PROSTATE CANCER METASTATIC
     Dosage: UNK, UNKNOWN
     Route: 058
     Dates: start: 201302

REACTIONS (6)
  - Respiratory alkalosis [Recovered/Resolved]
  - Dyspnoea [Recovered/Resolved]
  - Central-alveolar hypoventilation [Recovered/Resolved]
  - Hypoxia [Unknown]
  - Chest X-ray abnormal [Unknown]
  - Hyperhidrosis [Unknown]
